FAERS Safety Report 5263480-8 (Version None)
Quarter: 2007Q1

REPORT INFORMATION
  Report Type: 
  Country: None (occurrence: None)
  Receive Date: 20070313
  Receipt Date: 20070228
  Transmission Date: 20070707
  Serious: Yes (Congenital Anomaly)
  Sender: FDA-Public Use
  Company Number: PHNR2007AU00747

PATIENT

DRUGS (2)
  1. FOLIC ACID [Concomitant]
     Dosage: MATERNAL DOSE: 5 MG UNSPECIFIED FREQUENCY
     Route: 064
  2. CARBAMAZEPINE [Suspect]
     Indication: EPILEPSY
     Dosage: MATERNAL DOSE: 600 MG DAILY
     Route: 064

REACTIONS (4)
  - DILATATION ATRIAL [None]
  - DILATATION VENTRICULAR [None]
  - EBSTEIN'S ANOMALY [None]
  - TRICUSPID VALVE INCOMPETENCE [None]
